FAERS Safety Report 9946966 (Version 1)
Quarter: 2014Q1

REPORT INFORMATION
  Report Type: Report from Study
  Country: US (occurrence: US)
  Receive Date: 20140303
  Receipt Date: 20140303
  Transmission Date: 20141002
  Serious: No
  Sender: FDA-Public Use
  Company Number: US-ABBVIE-13P-163-1061882-00

PATIENT
  Age: 47 Year
  Sex: Female

DRUGS (4)
  1. HUMIRA [Suspect]
     Indication: COLITIS ULCERATIVE
     Dates: start: 20121022
  2. HUMIRA [Suspect]
     Dates: start: 20130211
  3. CYMBALTA [Concomitant]
     Indication: DEPRESSION
  4. LIALDA [Concomitant]
     Indication: COLITIS ULCERATIVE

REACTIONS (2)
  - Oral herpes [Unknown]
  - Colitis ulcerative [Not Recovered/Not Resolved]
